FAERS Safety Report 4488845-3 (Version None)
Quarter: 2004Q4

REPORT INFORMATION
  Report Type: 
  Country: None (occurrence: None)
  Receive Date: 20041029
  Receipt Date: 20041022
  Transmission Date: 20050328
  Serious: Yes (Other)
  Sender: FDA-Public Use
  Company Number: GB-MERCK-0410GBR00282

PATIENT
  Sex: Female

DRUGS (2)
  1. VIOXX [Suspect]
     Indication: OSTEOARTHRITIS
     Route: 048
     Dates: start: 20020306, end: 20040201
  2. ORLISTAT [Concomitant]
     Indication: OBESITY
     Route: 048
     Dates: start: 20030201

REACTIONS (2)
  - AMAUROSIS FUGAX [None]
  - CAROTID ARTERY DISEASE [None]
